FAERS Safety Report 7683810-7 (Version None)
Quarter: 2011Q3

REPORT INFORMATION
  Report Type: 
  Country: None (occurrence: None)
  Receive Date: 20110815
  Receipt Date: 20110810
  Transmission Date: 20111222
  Serious: Yes (Other)
  Sender: FDA-Public Use
  Company Number: CA-PFIZER INC-2011183804

PATIENT
  Age: 50 Year
  Sex: Female

DRUGS (4)
  1. LYRICA [Suspect]
     Dosage: 400 MG (75MG TO 150MG AT 6:30AM, 75MG TO 150MG AT 11:30AM AND 150MG AT 7PM)
  2. LYRICA [Suspect]
     Dosage: 75MG IN THE MORNING AND 150MG IN THE EVENING
  3. TYLENOL W/ CODEINE NO. 4 [Concomitant]
     Dosage: UNK
  4. LYRICA [Suspect]
     Indication: DIABETIC NEUROPATHY
     Dosage: 75 MG, 2X/DAY
     Dates: start: 20060504

REACTIONS (3)
  - DRUG TOLERANCE INCREASED [None]
  - SPINAL COLUMN INJURY [None]
  - DRUG INEFFECTIVE [None]
